FAERS Safety Report 9733026 (Version 2)
Quarter: 2013Q4

REPORT INFORMATION
  Report Type: Spontaneous
  Country: US (occurrence: US)
  Receive Date: 20131204
  Receipt Date: 20131204
  Transmission Date: 20140711
  Serious: No
  Sender: FDA-Public Use
  Company Number: US-GILEAD-2009-0021982

PATIENT
  Sex: Female
  Weight: 73.94 kg

DRUGS (12)
  1. LETAIRIS [Suspect]
     Indication: PULMONARY ARTERIAL HYPERTENSION
     Route: 048
     Dates: start: 20090401
  2. COUMADIN [Concomitant]
  3. LASIX [Concomitant]
  4. MICARDIS [Concomitant]
  5. TENORMIN [Concomitant]
  6. ALBUTEROL [Concomitant]
  7. POTASSIUM CHLORIDE [Concomitant]
  8. XANAX [Concomitant]
  9. RESTORIL [Concomitant]
  10. RESTASIS [Concomitant]
  11. VICODIN [Concomitant]
  12. OMEPRAZOLE [Concomitant]

REACTIONS (9)
  - Unevaluable event [Unknown]
  - International normalised ratio decreased [Unknown]
  - Systemic lupus erythematosus [Unknown]
  - Hordeolum [Unknown]
  - Gastrointestinal disorder [Unknown]
  - Dysphonia [Unknown]
  - Dyspnoea [Unknown]
  - Local swelling [Unknown]
  - Sinusitis [Unknown]
